FAERS Safety Report 6347853-8 (Version None)
Quarter: 2009Q3

REPORT INFORMATION
  Report Type: 
  Country: None (occurrence: None)
  Receive Date: 20090910
  Receipt Date: 20090831
  Transmission Date: 20100115
  Serious: Yes (Hospitalization, Other)
  Sender: FDA-Public Use
  Company Number: US-AVENTIS-200917771US

PATIENT
  Sex: Female

DRUGS (4)
  1. LANTUS [Suspect]
     Route: 058
  2. OPTICLIK GREY [Suspect]
     Dates: start: 20080101
  3. NOVOLOG [Suspect]
     Dosage: DOSE: UNK
  4. ORAL MEDICATIONS FOR DIABETES NOS [Concomitant]
     Dosage: DOSE: UNK

REACTIONS (8)
  - BLOOD CHOLESTEROL INCREASED [None]
  - CARDIAC FAILURE CONGESTIVE [None]
  - HYPERTENSION [None]
  - MYOCARDIAL INFARCTION [None]
  - RENAL FAILURE [None]
  - RESPIRATORY ARREST [None]
  - RETINOPATHY HAEMORRHAGIC [None]
  - VISUAL IMPAIRMENT [None]
